FAERS Safety Report 5744987-3 (Version None)
Quarter: 2008Q2

REPORT INFORMATION
  Report Type: 
  Country: None (occurrence: None)
  Receive Date: 20080521
  Receipt Date: 20080512
  Transmission Date: 20081010
  Serious: Yes (Hospitalization)
  Sender: FDA-Public Use
  Company Number: ES-JNJFOC-20080400320

PATIENT
  Age: 73 Year
  Sex: Male
  Weight: 89 kg

DRUGS (11)
  1. BLINDED; INFLIXIMAB, RECOMBINANT [Suspect]
     Route: 042
  2. BLINDED; INFLIXIMAB, RECOMBINANT [Suspect]
     Indication: POLYMYALGIA RHEUMATICA
     Route: 042
  3. PLACEBO [Suspect]
     Route: 042
  4. PLACEBO [Suspect]
     Indication: POLYMYALGIA RHEUMATICA
     Route: 042
  5. URBASON [Concomitant]
     Indication: POLYMYALGIA RHEUMATICA
     Route: 048
  6. SPIRIVA [Concomitant]
     Indication: CHRONIC OBSTRUCTIVE PULMONARY DISEASE
     Route: 055
  7. FLUTICASONE [Concomitant]
     Indication: CHRONIC OBSTRUCTIVE PULMONARY DISEASE
     Route: 055
  8. SALMETEROL [Concomitant]
     Indication: CHRONIC OBSTRUCTIVE PULMONARY DISEASE
     Route: 055
  9. CALCIUM [Concomitant]
     Indication: OSTEOPOROSIS PROPHYLAXIS
     Route: 048
  10. VITAMIN D [Concomitant]
     Indication: OSTEOPOROSIS PROPHYLAXIS
     Route: 048
  11. OMEPRAZOLE [Concomitant]
     Indication: ULCER
     Route: 048

REACTIONS (2)
  - PNEUMONIA [None]
  - RESPIRATORY FAILURE [None]
